FAERS Safety Report 14909863 (Version 2)
Quarter: 2018Q2

REPORT INFORMATION
  Report Type: Spontaneous
  Country: US (occurrence: US)
  Receive Date: 20180517
  Receipt Date: 20180518
  Transmission Date: 20180711
  Serious: Yes (Other)
  Sender: FDA-Public Use
  Company Number: US-PFIZER INC-2018198267

PATIENT
  Age: 53 Year
  Sex: Female
  Weight: 99.79 kg

DRUGS (18)
  1. LYRICA [Concomitant]
     Active Substance: PREGABALIN
     Indication: NEUROPATHY PERIPHERAL
     Dosage: 100 MG, 3X/DAY
     Route: 048
  2. CALTRATE 600+D [Concomitant]
     Indication: BONE DISORDER
     Dosage: 1 DF, 1X/DAY (AT NIGHT)
     Route: 048
  3. SERTRALINE [Concomitant]
     Active Substance: SERTRALINE HYDROCHLORIDE
     Indication: DEPRESSION
     Dosage: 1000 MG, 2X/DAY
     Route: 048
  4. BUSPIRONE [Concomitant]
     Active Substance: BUSPIRONE HYDROCHLORIDE
     Indication: ANXIETY
     Dosage: 40 MG, DAILY (FOUR TABLETS TOTAL A DAY)
     Route: 048
  5. MIRTAZAPINE. [Concomitant]
     Active Substance: MIRTAZAPINE
     Indication: SLEEP DISORDER
     Dosage: 7.5 MG, 1X/DAY (HALF TABLET AT NIGHT)
     Route: 048
  6. METOPROLOL. [Concomitant]
     Active Substance: METOPROLOL
     Indication: ARRHYTHMIA
     Dosage: 25 MG, 1X/DAY(AT NIGHT)
     Route: 048
  7. SUCRALFATE. [Concomitant]
     Active Substance: SUCRALFATE
     Indication: GASTROOESOPHAGEAL REFLUX DISEASE
     Dosage: UNK, 1X/DAY (TWO OR THREE BIG PILLS THAT YOU HAVE TO DISSOLVE IN WATER, AT NIGHT)
     Route: 048
  8. DOXYCYCLINE HYCLATE. [Concomitant]
     Active Substance: DOXYCYCLINE HYCLATE
     Indication: ARTHROPOD BITE
     Dosage: 200 MG, DAILY(TWO CAPSULES A DAY FOR 30 DAYS BY MOUTH)
     Route: 048
  9. AROMASIN [Suspect]
     Active Substance: EXEMESTANE
     Indication: BREAST CANCER
     Dosage: 25 MG, 1X/DAY
     Route: 048
     Dates: start: 2016
  10. PANTOPRAZOLE [Concomitant]
     Active Substance: PANTOPRAZOLE
     Indication: GASTROOESOPHAGEAL REFLUX DISEASE
     Dosage: 80 MG, DAILY (TWO TABLETS A DAY)
     Route: 048
  11. ACETAMINOPHEN W/OXYCODONE [Concomitant]
     Active Substance: ACETAMINOPHEN\OXYCODONE HYDROCHLORIDE
     Indication: PAIN
     Dosage: 3 DF ([OXYCODONE HYDROCHLORIDE (7.5 MG)/PARACETAMOL (325 MG)], DAILY
     Route: 048
  12. VITAMIN D3 [Concomitant]
     Active Substance: CHOLECALCIFEROL
     Indication: VITAMIN D DEFICIENCY
     Dosage: 2000 IU, UNK (ROUND PILL, SOFT GEL BY MOUTH)
     Route: 048
  13. BACLOFEN. [Concomitant]
     Active Substance: BACLOFEN
     Indication: SPINAL COLUMN STENOSIS
     Dosage: 10 MG, 3X/DAY
     Route: 048
  14. LYRICA [Concomitant]
     Active Substance: PREGABALIN
     Indication: FIBROMYALGIA
  15. ATORVASTATIN [Concomitant]
     Active Substance: ATORVASTATIN
     Indication: BLOOD CHOLESTEROL ABNORMAL
     Dosage: 10 MG, 1X/DAY
  16. METOPROLOL. [Concomitant]
     Active Substance: METOPROLOL
     Indication: CARDIAC PACEMAKER INSERTION
  17. BENADRYL [Concomitant]
     Active Substance: DIPHENHYDRAMINE HYDROCHLORIDE
     Indication: HYPERSENSITIVITY
     Dosage: 100 MG, 1X/DAY (FOUR TABLETS AT NIGHT)
     Route: 048
  18. CLONAZEPAM. [Concomitant]
     Active Substance: CLONAZEPAM
     Indication: SLEEP DISORDER
     Dosage: 1 MG, 1X/DAY (AT NIGHT)
     Route: 048

REACTIONS (1)
  - Osteonecrosis [Unknown]
